FAERS Safety Report 8522596-0 (Version None)
Quarter: 2012Q3

REPORT INFORMATION
  Report Type: 
  Country: None (occurrence: None)
  Receive Date: 20120719
  Receipt Date: 20120710
  Transmission Date: 20120928
  Serious: Yes (Other)
  Sender: FDA-Public Use
  Company Number: NO-BAXTER-2012BAX010857

PATIENT
  Age: 52 Year
  Sex: Female

DRUGS (2)
  1. KIOVIG [Suspect]
     Indication: POLYNEUROPATHY
  2. KIOVIG [Suspect]

REACTIONS (1)
  - HEPATITIS B ANTIGEN POSITIVE [None]
